FAERS Safety Report 14174554 (Version 2)
Quarter: 2017Q4

REPORT INFORMATION
  Report Type: Spontaneous
  Country: BR (occurrence: BR)
  Receive Date: 20171109
  Receipt Date: 20171205
  Transmission Date: 20180321
  Serious: Yes (Hospitalization)
  Sender: FDA-Public Use
  Company Number: BR-PFIZER INC-2017477075

PATIENT
  Age: 77 Year
  Sex: Male

DRUGS (7)
  1. FRONTAL [Suspect]
     Active Substance: ALPRAZOLAM
     Indication: ANXIETY
     Dosage: 0.5 MG, ONE TABLET AT NIGHT
     Dates: start: 1997
  2. ZARMINE [Concomitant]
     Dosage: UNK
  3. FRONTAL XR [Suspect]
     Active Substance: ALPRAZOLAM
     Indication: ANXIETY
     Dosage: 0.5 MG, DURING THE DAY
     Dates: start: 1997
  4. DIUPRESS [Concomitant]
     Dosage: UNK
  5. FRONTAL [Suspect]
     Active Substance: ALPRAZOLAM
     Indication: INSOMNIA
  6. FRONTAL XR [Suspect]
     Active Substance: ALPRAZOLAM
     Indication: INSOMNIA
  7. ARADOIS [Concomitant]
     Active Substance: LOSARTAN POTASSIUM
     Dosage: UNK

REACTIONS (2)
  - Inguinal hernia [Recovered/Resolved]
  - Sleep apnoea syndrome [Recovered/Resolved]
